FAERS Safety Report 6018645-4 (Version None)
Quarter: 2008Q4

REPORT INFORMATION
  Report Type: 
  Country: None (occurrence: None)
  Receive Date: 20081223
  Receipt Date: 20081217
  Transmission Date: 20090506
  Serious: Yes (Hospitalization, Disabling)
  Sender: FDA-Public Use
  Company Number: FR-AMGEN-UK194537

PATIENT
  Sex: Female

DRUGS (3)
  1. ROMIPLOSTIM [Suspect]
     Indication: IDIOPATHIC THROMBOCYTOPENIC PURPURA
     Route: 058
     Dates: start: 20060518
  2. HEPARIN [Concomitant]
     Route: 065
  3. IMMUNE GLOBULIN INTRAVENOUS (HUMAN) [Concomitant]
     Route: 065
     Dates: start: 20060726, end: 20061016

REACTIONS (2)
  - IDIOPATHIC THROMBOCYTOPENIC PURPURA [None]
  - THROMBOCYTOPENIA [None]
